FAERS Safety Report 7910802-2 (Version None)
Quarter: 2011Q4

REPORT INFORMATION
  Report Type: 
  Country: None (occurrence: None)
  Receive Date: 20111114
  Receipt Date: 20111104
  Transmission Date: 20120403
  Serious: Yes (Hospitalization)
  Sender: FDA-Public Use
  Company Number: IT-BRISTOL-MYERS SQUIBB COMPANY-16184426

PATIENT
  Age: 60 Year
  Sex: Female

DRUGS (12)
  1. TRUVADA [Suspect]
     Indication: HIV INFECTION
     Dosage: 1DF: 200MG/245MG 1 UNNIT.
     Route: 048
     Dates: start: 20040101, end: 20110525
  2. BISOPROLOL [Concomitant]
     Indication: HYPERTENSION
  3. DURONITRIN [Concomitant]
     Dosage: TABS.
  4. PLAVIX [Suspect]
     Indication: CORONARY ARTERY BYPASS
     Dosage: 1UNIT.
     Route: 048
     Dates: start: 20040101, end: 20110525
  5. REYATAZ [Suspect]
     Indication: HIV INFECTION
     Dosage: 1DF: 1UNIT.
     Route: 048
     Dates: start: 20040101, end: 20110525
  6. ATORVASTATIN CALCIUM [Concomitant]
  7. ASPIRIN [Suspect]
     Indication: CORONARY ARTERY BYPASS
     Dosage: POWDER. 1UNIT.
     Route: 048
     Dates: start: 20040101, end: 20110525
  8. METFORMIN [Concomitant]
     Route: 048
  9. LASIX [Concomitant]
  10. FOLINATE [Concomitant]
  11. LUCEN [Concomitant]
  12. NORVIR [Suspect]
     Indication: HIV INFECTION
     Dosage: 1UNIT.
     Route: 048
     Dates: start: 20040101, end: 20110525

REACTIONS (4)
  - MELAENA [None]
  - RENAL FAILURE ACUTE [None]
  - ANAEMIA [None]
  - GASTROINTESTINAL INFECTION [None]
